FAERS Safety Report 8418785-6 (Version None)
Quarter: 2012Q2

REPORT INFORMATION
  Report Type: 
  Country: None (occurrence: None)
  Receive Date: 20120607
  Receipt Date: 20120530
  Transmission Date: 20120825
  Serious: Yes (Other)
  Sender: FDA-Public Use
  Company Number: AR-ROCHE-1074613

PATIENT
  Sex: Female

DRUGS (1)
  1. LUCENTIS [Suspect]
     Indication: MACULOPATHY
     Route: 050
     Dates: start: 20110101

REACTIONS (5)
  - VISUAL ACUITY REDUCED [None]
  - FALL [None]
  - DRUG INEFFECTIVE [None]
  - HAEMORRHAGE [None]
  - HEAD INJURY [None]
